FAERS Safety Report 8273759-3 (Version None)
Quarter: 2012Q2

REPORT INFORMATION
  Report Type: 
  Country: None (occurrence: None)
  Receive Date: 20120409
  Receipt Date: 20120409
  Transmission Date: 20120825
  Serious: Yes (Hospitalization)
  Sender: FDA-Public Use
  Company Number: None

PATIENT
  Age: 62 Year
  Sex: Male
  Weight: 89 kg

DRUGS (3)
  1. TRAZODONE HCL [Suspect]
     Indication: INSOMNIA
     Dosage: 150-200 MG HS PO
     Route: 048
     Dates: start: 20111104, end: 20111204
  2. CITALOPRAM HYDROBROMIDE [Suspect]
     Indication: ANXIETY
     Dosage: 10-20 MG EVERY DAY PO
     Route: 048
     Dates: start: 20111104, end: 20111204
  3. CITALOPRAM HYDROBROMIDE [Suspect]
     Indication: DEPRESSION
     Dosage: 10-20 MG EVERY DAY PO
     Route: 048
     Dates: start: 20111104, end: 20111204

REACTIONS (1)
  - ANGIOEDEMA [None]
